FAERS Safety Report 25335570 (Version 4)
Quarter: 2025Q4

REPORT INFORMATION
  Report Type: Report from Study
  Country: US (occurrence: US)
  Receive Date: 20250520
  Receipt Date: 20251211
  Transmission Date: 20260118
  Serious: Yes (Other)
  Sender: TRAVERE THERAPEUTICS
  Company Number: US-TRAVERE-2025TVT00734

PATIENT
  Age: 30 Year
  Sex: Female
  Weight: 72.57 kg

DRUGS (12)
  1. FILSPARI [Suspect]
     Active Substance: SPARSENTAN
     Indication: IgA nephropathy
     Route: 048
     Dates: start: 20250328, end: 20250411
  2. FILSPARI [Suspect]
     Active Substance: SPARSENTAN
     Route: 048
     Dates: start: 20250411
  3. NIFEDIPINE [Concomitant]
     Active Substance: NIFEDIPINE
  4. LABETALOL [Concomitant]
     Active Substance: LABETALOL
  5. FARXIGA [Concomitant]
     Active Substance: DAPAGLIFLOZIN PROPANEDIOL
  6. NEXIUM [Concomitant]
     Active Substance: ESOMEPRAZOLE MAGNESIUM
  7. JENCYCLA [Concomitant]
     Active Substance: NORETHINDRONE
  8. ALBUTEROL [Concomitant]
     Active Substance: ALBUTEROL
  9. OMEPRAZOLE [Concomitant]
     Active Substance: OMEPRAZOLE
  10. VALSARTAN [Concomitant]
     Active Substance: VALSARTAN
  11. SODIUM BICARBONATE [Concomitant]
     Active Substance: SODIUM BICARBONATE
  12. PEPCID COMPLETE [Concomitant]
     Active Substance: CALCIUM CARBONATE\FAMOTIDINE\MAGNESIUM HYDROXIDE

REACTIONS (5)
  - Pharyngitis [Unknown]
  - Renal injury [Unknown]
  - Urine protein/creatinine ratio increased [Unknown]
  - Urine analysis abnormal [None]
  - Contraindicated product administered [Unknown]

NARRATIVE: CASE EVENT DATE: 20250410
